FAERS Safety Report 5700691-9 (Version None)
Quarter: 2008Q2

REPORT INFORMATION
  Report Type: 
  Country: None (occurrence: None)
  Receive Date: 20080409
  Receipt Date: 20080409
  Transmission Date: 20081010
  Serious: No
  Sender: FDA-Public Use
  Company Number: None

PATIENT
  Sex: Female
  Weight: 63.5036 kg

DRUGS (1)
  1. ZOMETA [Suspect]
     Indication: OSTEOPENIA
     Dosage: X 1
     Dates: start: 20080329, end: 20080329

REACTIONS (1)
  - IRIDOCYCLITIS [None]
